APPROVED DRUG PRODUCT: LEVO-T
Active Ingredient: LEVOTHYROXINE SODIUM
Strength: 0.112MG **See current Annual Edition, 1.8 Description of Special Situations, Levothyroxine Sodium
Dosage Form/Route: TABLET;ORAL
Application: N021342 | Product #006 | TE Code: AB1,AB2,AB3
Applicant: CEDIPROF INC
Approved: Mar 1, 2002 | RLD: No | RS: No | Type: RX